FAERS Safety Report 25998602 (Version 3)
Quarter: 2025Q4

REPORT INFORMATION
  Report Type: Spontaneous
  Country: US (occurrence: US)
  Receive Date: 20251105
  Receipt Date: 20251227
  Transmission Date: 20260117
  Serious: Yes (Hospitalization)
  Sender: ROCHE
  Company Number: US-ROCHE-10000423165

PATIENT
  Sex: Male

DRUGS (28)
  1. ACTEMRA ACTPEN [Suspect]
     Active Substance: TOCILIZUMAB
     Indication: Drug therapy
     Dosage: STREGTH: 162 MG/0.9 ML
     Route: 058
  2. XOLAIR [Suspect]
     Active Substance: OMALIZUMAB
     Indication: Rheumatoid arthritis
     Route: 058
  3. XOLAIR [Suspect]
     Active Substance: OMALIZUMAB
  4. LEFLUNOMIDE [Concomitant]
     Active Substance: LEFLUNOMIDE
  5. DOXYCYCLINE CPD 40 mg [Concomitant]
  6. MAGNESIUM TAB 400MG [Concomitant]
  7. REMERON TAB 30MG [Concomitant]
  8. Clonidine HC TAB 0.3MG [Concomitant]
  9. MIRTAZAPINE TAB 45MG [Concomitant]
  10. PROAIR HFA [Concomitant]
     Active Substance: ALBUTEROL SULFATE
  11. FLUCONAZOLE TAB 200MG [Concomitant]
  12. AMITRIPTYLINE HYDROCHLORIDE [Concomitant]
     Active Substance: AMITRIPTYLINE HYDROCHLORIDE
  13. FENOFIBRATE TAB 160MG [Concomitant]
  14. ROPINIROLE H TAB 5 MG [Concomitant]
  15. METFORMIN HC TAB 1000MG [Concomitant]
  16. TRIAMCINOLON CRE 0.5 % [Concomitant]
  17. CLONAZEPAM [Concomitant]
     Active Substance: CLONAZEPAM
  18. PREDNISONE [Concomitant]
     Active Substance: PREDNISONE
  19. BUPROPION HC TAB 100 MG [Concomitant]
  20. CYMBALTA CPE 60MG [Concomitant]
  21. BYSTOLlC TAB 20MG [Concomitant]
  22. MELOXICAM [Concomitant]
     Active Substance: MELOXICAM
  23. ALPRAZOLAM TAB 2MG [Concomitant]
  24. ABILIFY TAB 30MG [Concomitant]
  25. TIZANIDINE H TAB 4MG [Concomitant]
  26. TRAMADOL HCL [Concomitant]
     Active Substance: TRAMADOL HYDROCHLORIDE
  27. Acyclovir TAB 800MG [Concomitant]
  28. Trimethobenz [Concomitant]

REACTIONS (3)
  - Blood pressure decreased [Unknown]
  - Hypertension [Unknown]
  - Presyncope [Recovering/Resolving]
